FAERS Safety Report 4432819-5 (Version None)
Quarter: 2004Q3

REPORT INFORMATION
  Report Type: 
  Country: None (occurrence: None)
  Receive Date: 20040823
  Receipt Date: 20040805
  Transmission Date: 20050211
  Serious: Yes (Hospitalization)
  Sender: FDA-Public Use
  Company Number: DSA_24790_2004

PATIENT
  Age: 56 Year
  Sex: Male

DRUGS (1)
  1. EMESTAR PLUS/EPROSARTAN MESYLATE WITH HYDROCHLOROTHIAZIDE [Suspect]
     Indication: HYPERTENSION
     Dosage: DF  PO
     Route: 048
     Dates: start: 20040213, end: 20040302

REACTIONS (3)
  - BLOOD CHOLESTEROL INCREASED [None]
  - BLOOD TRIGLYCERIDES INCREASED [None]
  - HEPATITIS [None]
